FAERS Safety Report 12237446 (Version 1)
Quarter: 2016Q2

REPORT INFORMATION
  Report Type: Spontaneous
  Country: US (occurrence: None)
  Receive Date: 20160404
  Receipt Date: 20160404
  Transmission Date: 20160815
  Serious: No
  Sender: FDA-Public Use
  Company Number: None

PATIENT
  Age: 69 Year
  Sex: Female
  Weight: 72.58 kg

DRUGS (7)
  1. STIOLTO RESPIMAT [Suspect]
     Active Substance: OLODATEROL HYDROCHLORIDE\TIOTROPIUM BROMIDE MONOHYDRATE
     Indication: CHRONIC OBSTRUCTIVE PULMONARY DISEASE
     Dosage: 2 PUFF (S) TWICE A DAY
     Dates: start: 20160210, end: 20160315
  2. XOPENEX [Concomitant]
     Active Substance: LEVALBUTEROL HYDROCHLORIDE
  3. MULTI VITAMINS [Concomitant]
  4. FISH OIL [Concomitant]
     Active Substance: FISH OIL
  5. FLOVENT [Concomitant]
     Active Substance: FLUTICASONE PROPIONATE
  6. STIOLTO RESPIMAT [Suspect]
     Active Substance: OLODATEROL HYDROCHLORIDE\TIOTROPIUM BROMIDE MONOHYDRATE
     Indication: ASTHMA
     Dosage: 2 PUFF (S) TWICE A DAY
     Dates: start: 20160210, end: 20160315
  7. TURMERIC [Concomitant]
     Active Substance: TURMERIC

REACTIONS (4)
  - Sinus headache [None]
  - Sinusitis [None]
  - Rhinorrhoea [None]
  - Bronchitis [None]

NARRATIVE: CASE EVENT DATE: 20160310
